FAERS Safety Report 14166635 (Version 1)
Quarter: 2017Q4

REPORT INFORMATION
  Report Type: Spontaneous
  Country: US (occurrence: US)
  Receive Date: 20171106
  Receipt Date: 20171106
  Transmission Date: 20180321
  Serious: No
  Sender: FDA-Public Use
  Company Number: None

PATIENT
  Age: 45 Year
  Sex: Female
  Weight: 108 kg

DRUGS (2)
  1. FLONASE SENSIMIST ALLERGY RELIEF [Suspect]
     Active Substance: FLUTICASONE FUROATE
     Indication: HYPERSENSITIVITY
     Dosage: ?          QUANTITY:2 SPRAY(S);OTHER ROUTE:SPRAY IN NOSTRIL?
     Dates: start: 20171030, end: 20171103
  2. ALIVE MULTI VITAMIN [Concomitant]

REACTIONS (8)
  - Nausea [None]
  - Abdominal pain [None]
  - Diarrhoea [None]
  - Headache [None]
  - Product quality issue [None]
  - Dizziness [None]
  - Chills [None]
  - Vomiting [None]
